FAERS Safety Report 10932870 (Version 1)
Quarter: 2015Q1

REPORT INFORMATION
  Report Type: Spontaneous
  Country: US (occurrence: None)
  Receive Date: 20150319
  Receipt Date: 20150319
  Transmission Date: 20150721
  Serious: Yes (Hospitalization, Disabling)
  Sender: FDA-Public Use
  Company Number: None

PATIENT
  Age: 67 Year
  Sex: Female
  Weight: 81.65 kg

DRUGS (12)
  1. POTASSIUM (RX) [Concomitant]
  2. IBUPROPHEN [Concomitant]
     Active Substance: IBUPROFEN
  3. CALCIUM [Concomitant]
     Active Substance: CALCIUM
  4. DIVALPROEX [Suspect]
     Active Substance: DIVALPROEX SODIUM
     Indication: BIPOLAR DISORDER
     Dosage: 2 PILLS
     Route: 048
     Dates: end: 201305
  5. VIT B-12 INJECTIONS [Concomitant]
  6. MULTI VIT. [Concomitant]
  7. KLONOPIN [Concomitant]
     Active Substance: CLONAZEPAM
  8. LEVOTHYROXINE [Concomitant]
     Active Substance: LEVOTHYROXINE
  9. DOXEPIN [Concomitant]
     Active Substance: DOXEPIN
  10. VIT D-3 [Concomitant]
  11. WELLBUTRIN [Concomitant]
     Active Substance: BUPROPION HYDROCHLORIDE
  12. MIRTAZAPINE. [Concomitant]
     Active Substance: MIRTAZAPINE

REACTIONS (8)
  - Insomnia [None]
  - Bedridden [None]
  - Parkinsonism [None]
  - Fall [None]
  - Asthenia [None]
  - Decreased activity [None]
  - Dizziness [None]
  - Road traffic accident [None]

NARRATIVE: CASE EVENT DATE: 201303
